FAERS Safety Report 24353527 (Version 1)
Quarter: 2024Q3

REPORT INFORMATION
  Report Type: Spontaneous
  Country: US (occurrence: US)
  Receive Date: 20240923
  Receipt Date: 20240923
  Transmission Date: 20241017
  Serious: No
  Sender: PFIZER
  Company Number: US-PFIZER INC-PV202400123952

PATIENT
  Age: 65 Year
  Sex: Female

DRUGS (1)
  1. INLYTA [Suspect]
     Active Substance: AXITINIB

REACTIONS (4)
  - Nausea [Unknown]
  - Vomiting [Unknown]
  - Fatigue [Unknown]
  - Decreased appetite [Unknown]
